FAERS Safety Report 4617610-9 (Version None)
Quarter: 2005Q1

REPORT INFORMATION
  Report Type: 
  Country: None (occurrence: None)
  Receive Date: 20050324
  Receipt Date: 20050310
  Transmission Date: 20050727
  Serious: Yes (Other)
  Sender: FDA-Public Use
  Company Number: FR-SOLVAY-00305000909

PATIENT
  Age: 25 Year
  Sex: Female

DRUGS (2)
  1. ROWASA [Suspect]
     Indication: COLITIS ULCERATIVE
     Dosage: DAILY DOSE: 2 GRAM(S)
     Route: 054
     Dates: start: 20041101
  2. PENTASA [Suspect]
     Indication: COLITIS ULCERATIVE
     Dosage: DAILY DOSE: 2 GRAM(S)
     Route: 048

REACTIONS (3)
  - GROWTH RETARDATION [None]
  - OLIGOHYDRAMNIOS [None]
  - PREMATURE BABY [None]
